FAERS Safety Report 21151163 (Version 1)
Quarter: 2022Q3

REPORT INFORMATION
  Report Type: Spontaneous
  Country: ES (occurrence: ES)
  Receive Date: 20220730
  Receipt Date: 20220730
  Transmission Date: 20221027
  Serious: Yes (Hospitalization, Other)
  Sender: FDA-Public Use
  Company Number: None

PATIENT
  Age: 38 Year
  Sex: Female
  Weight: 55 kg

DRUGS (4)
  1. LEVOTHYROXINE SODIUM [Suspect]
     Active Substance: LEVOTHYROXINE SODIUM
     Indication: Hypothyroidism
     Dosage: 1 TABLET A DAY HALF AN HOUR BEFORE BREAKFAST REDUCED DOSE TO NOW I TAKE EUTHYROX 50 1 TABLET A DAY H
     Dates: start: 20200314
  2. VENTOLIN [Concomitant]
     Active Substance: ALBUTEROL SULFATE
     Indication: Asthma
     Dosage: PUNCTUAL ,100 MICROGRAMS/INHALATION, PRESSURE PACK INHALATION, SUSPENSION, 1 INHALER OF 200 DOSES ,
  3. DIAZEPAM [Concomitant]
     Active Substance: DIAZEPAM
     Indication: Cervicogenic vertigo
     Dosage: DIAZEPAM (730A)
  4. ACETAMINOPHEN [Concomitant]
     Active Substance: ACETAMINOPHEN
     Indication: Product used for unknown indication
     Dosage: PROMPTLY ,PARACETAMOL (12A)

REACTIONS (7)
  - Dyspnoea [Recovered/Resolved]
  - Palpitations [Recovered/Resolved]
  - Diarrhoea [Recovered/Resolved]
  - Hot flush [Recovered/Resolved]
  - Pyrexia [Recovered/Resolved]
  - Tachycardia [Recovered/Resolved]
  - Thyroiditis [Recovered/Resolved]

NARRATIVE: CASE EVENT DATE: 20200328
